FAERS Safety Report 8884501 (Version 1)
Quarter: 2012Q4

REPORT INFORMATION
  Report Type: 
  Country: US (occurrence: US)
  Receive Date: 20121104
  Receipt Date: 20121104
  Transmission Date: 20130627
  Serious: Yes (Other)
  Sender: FDA-Public Use
  Company Number: US-BAYER-2012-113608

PATIENT
  Age: 75 Year
  Sex: Female
  Weight: 48 kg

DRUGS (6)
  1. BAYER GENUINE ASPIRIN ORIGINAL STRENGTH [Suspect]
     Dosage: UNK UNK, QD
     Route: 048
  2. PRILOSEC [Concomitant]
  3. POTASSIUM [Concomitant]
  4. TRIAMTERENE [Concomitant]
  5. CENTRUM SILVER [Concomitant]
  6. GARLIC [Concomitant]

REACTIONS (4)
  - Urinary tract infection [Recovered/Resolved]
  - Gastric disorder [Not Recovered/Not Resolved]
  - Decreased appetite [Not Recovered/Not Resolved]
  - Weight decreased [Not Recovered/Not Resolved]
